FAERS Safety Report 7987396 (Version 5)
Quarter: 2014Q1

REPORT INFORMATION
  Report Type: Spontaneous
  Country: US (occurrence: US)
  Receive Date: 20110613
  Receipt Date: 20140218
  Transmission Date: 20141002
  Serious: Yes (Hospitalization, Other)
  Sender: FDA-Public Use
  Company Number: US-ASTRAZENECA-2011SE34480

PATIENT
  Age: 54 Year
  Sex: Female
  Weight: 61.7 kg

DRUGS (8)
  1. CRESTOR [Suspect]
     Indication: BLOOD CHOLESTEROL INCREASED
     Route: 048
     Dates: end: 20140110
  2. NEXIUM [Suspect]
     Indication: HIATUS HERNIA
     Route: 048
     Dates: end: 20140110
  3. NEXIUM [Suspect]
     Indication: GASTROOESOPHAGEAL REFLUX DISEASE
     Route: 048
     Dates: end: 20140110
  4. LISINOPRIL [Suspect]
     Route: 048
  5. LABETALOL [Concomitant]
     Indication: BLOOD PRESSURE ABNORMAL
     Route: 048
     Dates: start: 2012
  6. VALIUM [Concomitant]
     Indication: POST-TRAUMATIC STRESS DISORDER
     Route: 048
     Dates: start: 2004
  7. CELEXIA [Concomitant]
     Indication: SLEEP DISORDER
     Route: 048
     Dates: start: 2011
  8. CELEXIA [Concomitant]
     Indication: NERVOUS SYSTEM DISORDER
     Route: 048
     Dates: start: 2011

REACTIONS (4)
  - Myocardial infarction [Unknown]
  - Cardiomyopathy [Unknown]
  - Renal failure [Unknown]
  - Drug dose omission [Not Recovered/Not Resolved]
